FAERS Safety Report 8789542 (Version 1)
Quarter: 2012Q4

REPORT INFORMATION
  Report Type: Spontaneous
  Country: US (occurrence: None)
  Receive Date: 20120910
  Receipt Date: 20120910
  Transmission Date: 20130627
  Serious: Yes (Death)
  Sender: FDA-Public Use
  Company Number: None

PATIENT
  Age: 68 Year
  Sex: Female
  Weight: 77 kg

DRUGS (2)
  1. VELCADE [Suspect]
  2. VELCADE [Concomitant]

REACTIONS (4)
  - Skin exfoliation [None]
  - Respiratory failure [None]
  - Anuria [None]
  - Sepsis [None]
